FAERS Safety Report 9773271 (Version 1)
Quarter: 2013Q4

REPORT INFORMATION
  Report Type: Spontaneous
  Country: FI (occurrence: FI)
  Receive Date: 20131219
  Receipt Date: 20131219
  Transmission Date: 20140711
  Serious: Yes (Other)
  Sender: FDA-Public Use
  Company Number: FI-GLAXOSMITHKLINE-B0953915A

PATIENT
  Age: 53 Year
  Sex: Female

DRUGS (4)
  1. SERETIDE DISKUS [Suspect]
     Indication: ASTHMA
     Dosage: 1PUFF TWICE PER DAY
     Route: 055
  2. VENTOLIN DISKUS [Concomitant]
     Route: 055
  3. SPIRIVA [Concomitant]
     Dosage: 2PUFF PER DAY
     Route: 055
  4. PREDNISONE [Concomitant]
     Route: 065

REACTIONS (1)
  - Adrenal insufficiency [Not Recovered/Not Resolved]
